FAERS Safety Report 8034645-7 (Version None)
Quarter: 2012Q1

REPORT INFORMATION
  Report Type: 
  Country: None (occurrence: None)
  Receive Date: 20120110
  Receipt Date: 20120105
  Transmission Date: 20120608
  Serious: Yes (Hospitalization, Disabling)
  Sender: FDA-Public Use
  Company Number: US-MERCK-1109USA01359

PATIENT
  Sex: Female

DRUGS (4)
  1. FOSAMAX [Suspect]
     Route: 048
     Dates: start: 20070401, end: 20071101
  2. FOSAMAX [Suspect]
     Route: 048
     Dates: start: 20070401, end: 20071101
  3. FOSAMAX [Suspect]
     Indication: OSTEOPENIA
     Route: 048
     Dates: start: 20020701, end: 20030601
  4. FOSAMAX [Suspect]
     Indication: OSTEOPOROSIS
     Route: 048
     Dates: start: 20020701, end: 20030601

REACTIONS (10)
  - PATHOLOGICAL FRACTURE [None]
  - RHEUMATOID ARTHRITIS [None]
  - ANXIETY [None]
  - FRACTURE DELAYED UNION [None]
  - LOW TURNOVER OSTEOPATHY [None]
  - FEAR [None]
  - FEMUR FRACTURE [None]
  - FRACTURE NONUNION [None]
  - DIABETES MELLITUS [None]
  - ABASIA [None]
